FAERS Safety Report 20931595 (Version 2)
Quarter: 2022Q2

REPORT INFORMATION
  Report Type: Report from Study
  Country: US (occurrence: US)
  Receive Date: 20220608
  Receipt Date: 20220630
  Transmission Date: 20220720
  Serious: Yes (Other)
  Sender: FDA-Public Use
  Company Number: US-BRISTOL-MYERS SQUIBB COMPANY-2022-047691

PATIENT
  Age: 58 Year
  Sex: Male

DRUGS (2)
  1. REVLIMID [Suspect]
     Active Substance: LENALIDOMIDE
     Indication: Plasma cell myeloma
     Dosage: FOR 14 DAYS 21 DAY CYCLE.?ANOTHER LOT EXPIRATION DATE: 31- MAY-2024
     Route: 048
     Dates: start: 20220428
  2. ASPIRIN [Suspect]
     Active Substance: ASPIRIN
     Indication: Product used for unknown indication

REACTIONS (4)
  - Sinusitis [Recovering/Resolving]
  - Epistaxis [Recovered/Resolved]
  - Bone disorder [Unknown]
  - Neoplasm [Unknown]

NARRATIVE: CASE EVENT DATE: 20220501
